FAERS Safety Report 11966070 (Version 1)
Quarter: 2016Q1

REPORT INFORMATION
  Report Type: Spontaneous
  Country: US (occurrence: US)
  Receive Date: 20160127
  Receipt Date: 20160127
  Transmission Date: 20160526
  Serious: Yes (Other)
  Sender: FDA-Public Use
  Company Number: US-BAXTER-2016BAX003656

PATIENT

DRUGS (3)
  1. ADRIAMYCIN [Suspect]
     Active Substance: DOXORUBICIN HYDROCHLORIDE
     Indication: SQUAMOUS CELL CARCINOMA
     Route: 042
  2. VINCRISTINE [Suspect]
     Active Substance: VINCRISTINE
     Indication: SQUAMOUS CELL CARCINOMA
     Route: 042
  3. CYCLOPHOSPHAMIDE FOR INJECTION, USP [Suspect]
     Active Substance: CYCLOPHOSPHAMIDE
     Indication: SQUAMOUS CELL CARCINOMA
     Route: 042

REACTIONS (5)
  - Alopecia [Unknown]
  - Vomiting [Unknown]
  - No therapeutic response [Unknown]
  - Leukopenia [Unknown]
  - Nausea [Unknown]
